FAERS Safety Report 14848387 (Version 1)
Quarter: 2018Q2

REPORT INFORMATION
  Report Type: Spontaneous
  Country: US (occurrence: US)
  Receive Date: 20180419
  Receipt Date: 20180419
  Transmission Date: 20180711
  Serious: No
  Sender: FDA-Public Use
  Company Number: None

PATIENT
  Age: 39 Year
  Sex: Female
  Weight: 81 kg

DRUGS (2)
  1. FLUOXETINE 40MG CAPSULES [Suspect]
     Active Substance: FLUOXETINE HYDROCHLORIDE
     Indication: ANXIETY
     Dosage: ?          QUANTITY:90 DF DOSAGE FORM;?
     Route: 048
  2. FLUOXETINE 40MG CAPSULES [Suspect]
     Active Substance: FLUOXETINE HYDROCHLORIDE
     Indication: DEPRESSION
     Dosage: ?          QUANTITY:90 DF DOSAGE FORM;?
     Route: 048

REACTIONS (3)
  - Drug ineffective [None]
  - Abdominal pain upper [None]
  - Product odour abnormal [None]

NARRATIVE: CASE EVENT DATE: 20180309
